FAERS Safety Report 8771231 (Version 2)
Quarter: 2012Q4

REPORT INFORMATION
  Report Type: Report from Study
  Country: ES (occurrence: ES)
  Receive Date: 20120906
  Receipt Date: 20120910
  Transmission Date: 20130627
  Serious: Yes (Death)
  Sender: FDA-Public Use
  Company Number: ES-B.I. PHARMACEUTICALS,INC./RIDGEFIELD-2012-ES-00342ES

PATIENT
  Sex: Female

DRUGS (1)
  1. MICARDISPLUS [Suspect]
     Indication: HYPERTENSION
     Dosage: strength and daily dose: 80/12.5 mg
     Dates: start: 20090219, end: 20090521

REACTIONS (1)
  - Death [Fatal]
